FAERS Safety Report 6173616-2 (Version None)
Quarter: 2009Q2

REPORT INFORMATION
  Report Type: 
  Country: None (occurrence: None)
  Receive Date: 20090429
  Receipt Date: 20090429
  Transmission Date: 20091009
  Serious: Yes (Death, Life-Threatening, Hospitalization)
  Sender: FDA-Public Use
  Company Number: None

PATIENT
  Age: 30 Year
  Sex: Female
  Weight: 60 kg

DRUGS (2)
  1. GEODON [Suspect]
     Indication: DEPRESSION
     Dosage: ONE MORNING ONE EVENING
  2. GEODON [Suspect]

REACTIONS (2)
  - CARDIAC ARREST [None]
  - DRUG INTERACTION [None]
